FAERS Safety Report 19953565 (Version 1)
Quarter: 2021Q4

REPORT INFORMATION
  Report Type: Spontaneous
  Country: US (occurrence: US)
  Receive Date: 20211012
  Receipt Date: 20211012
  Transmission Date: 20220303
  Serious: Yes (Hospitalization)
  Sender: FDA-Public Use
  Company Number: None

PATIENT
  Age: 71 Year
  Sex: Male
  Weight: 108.41 kg

DRUGS (1)
  1. FUROSEMIDE [Suspect]
     Active Substance: FUROSEMIDE
     Indication: Oedema
     Route: 048
     Dates: start: 20110725, end: 20210514

REACTIONS (6)
  - Hypokalaemia [None]
  - Hyperhidrosis [None]
  - Dizziness [None]
  - Tremor [None]
  - Hypotension [None]
  - Electrocardiogram QT prolonged [None]
